FAERS Safety Report 20187880 (Version 1)
Quarter: 2021Q4

REPORT INFORMATION
  Report Type: Spontaneous
  Country: US (occurrence: US)
  Receive Date: 20211215
  Receipt Date: 20211215
  Transmission Date: 20220303
  Serious: Yes (Hospitalization, Other)
  Sender: FDA-Public Use
  Company Number: US-PURDUE-USA-2020-0190818

PATIENT
  Sex: Male

DRUGS (2)
  1. HYDROCODONE BITARTRATE [Suspect]
     Active Substance: HYDROCODONE BITARTRATE
     Indication: Back injury
     Dosage: UNK
     Route: 065
  2. MORPHINE SULFATE [Suspect]
     Active Substance: MORPHINE SULFATE
     Indication: Back injury
     Dosage: UNK
     Route: 065

REACTIONS (10)
  - Overdose [Unknown]
  - Drug dependence [Unknown]
  - Anger [Unknown]
  - Weight decreased [Unknown]
  - Stress [Unknown]
  - Drug withdrawal syndrome [Unknown]
  - Pain [Unknown]
  - Anxiety [Unknown]
  - Depression [Unknown]
  - Decreased appetite [Unknown]

NARRATIVE: CASE EVENT DATE: 20060701
